FAERS Safety Report 18335365 (Version 5)
Quarter: 2021Q1

REPORT INFORMATION
  Report Type: Report from Study
  Country: US (occurrence: US)
  Receive Date: 20201001
  Receipt Date: 20210327
  Transmission Date: 20210419
  Serious: Yes (Other)
  Sender: FDA-Public Use
  Company Number: NVSC2020US258269

PATIENT
  Sex: Male
  Weight: 4.54 kg

DRUGS (1)
  1. ZOLGENSMA [Suspect]
     Active Substance: ONASEMNOGENE ABEPARVOVEC-XIOI
     Indication: SPINAL MUSCULAR ATROPHY
     Dosage: UNK, ONCE/SINGLE
     Route: 042
     Dates: start: 20200918, end: 20200918

REACTIONS (9)
  - Pallor [Unknown]
  - Flatulence [Unknown]
  - Rhinorrhoea [Unknown]
  - Nausea [Unknown]
  - Chest discomfort [Unknown]
  - Parainfluenzae virus infection [Unknown]
  - Cough [Unknown]
  - Diarrhoea [Unknown]
  - Weight gain poor [Unknown]
